FAERS Safety Report 19483775 (Version 1)
Quarter: 2021Q3

REPORT INFORMATION
  Report Type: Spontaneous
  Country: US (occurrence: US)
  Receive Date: 20210701
  Receipt Date: 20210701
  Transmission Date: 20211014
  Serious: No
  Sender: FDA-Public Use
  Company Number: US-ROCHE-2823500

PATIENT
  Sex: Female
  Weight: 59.02 kg

DRUGS (1)
  1. CLONAZEPAM. [Suspect]
     Active Substance: CLONAZEPAM
     Indication: DYSTONIA
     Route: 065

REACTIONS (4)
  - Immobile [Unknown]
  - Dystonia [Unknown]
  - Headache [Unknown]
  - Pain in extremity [Unknown]
